FAERS Safety Report 16227515 (Version 1)
Quarter: 2019Q2

REPORT INFORMATION
  Report Type: Spontaneous
  Country: US (occurrence: US)
  Receive Date: 20190423
  Receipt Date: 20190423
  Transmission Date: 20190711
  Serious: Yes (Hospitalization, Other)
  Sender: FDA-Public Use
  Company Number: US-BRISTOL-MYERS SQUIBB COMPANY-BMS-2019-037883

PATIENT
  Age: 38 Year
  Sex: Female

DRUGS (1)
  1. OPDIVO [Suspect]
     Active Substance: NIVOLUMAB
     Indication: MALIGNANT MELANOMA
     Dosage: 480 Q4WK, 240 Q2WK
     Route: 042
     Dates: start: 201810, end: 20181231

REACTIONS (2)
  - Crohn^s disease [Unknown]
  - Alopecia [Unknown]
